FAERS Safety Report 6244823-5 (Version None)
Quarter: 2009Q2

REPORT INFORMATION
  Report Type: 
  Country: None (occurrence: None)
  Receive Date: 20090625
  Receipt Date: 20090619
  Transmission Date: 20091009
  Serious: Yes (Hospitalization)
  Sender: FDA-Public Use
  Company Number: US-ASTRAZENECA-2009UW16081

PATIENT
  Age: 9 Month
  Sex: Male
  Weight: 10.4 kg

DRUGS (2)
  1. PULMICORT RESPULES [Suspect]
     Indication: ASTHMA
     Route: 055
     Dates: start: 20090401
  2. ALBUTER0L [Concomitant]
     Indication: ASTHMA
     Route: 055

REACTIONS (4)
  - COUGH [None]
  - INCORRECT DOSE ADMINISTERED [None]
  - PYREXIA [None]
  - WHEEZING [None]
